FAERS Safety Report 22333720 (Version 3)
Quarter: 2023Q2

REPORT INFORMATION
  Report Type: Spontaneous
  Country: US (occurrence: US)
  Receive Date: 20230517
  Receipt Date: 20230615
  Transmission Date: 20230721
  Serious: No
  Sender: FDA-Public Use
  Company Number: US-KARYOPHARM-2023KPT001196

PATIENT

DRUGS (15)
  1. XPOVIO [Suspect]
     Active Substance: SELINEXOR
     Indication: Plasma cell myeloma
     Dosage: 80 MG, WEEKLY ON DAYS 1, 8, AND 15 OF EACH 28-DAY CYCLE
     Route: 048
     Dates: start: 20230420
  2. XPOVIO [Suspect]
     Active Substance: SELINEXOR
     Dosage: 80 MG, WEEKLY ON DAYS 1, 8, AND 15 OF EACH 28-DAY CYCLE
     Route: 048
     Dates: end: 202305
  3. XPOVIO [Suspect]
     Active Substance: SELINEXOR
     Dosage: 80 MG, WEEKLY ON DAYS 1, 8 AND 15
     Route: 048
     Dates: start: 202305, end: 20230601
  4. ACYCLOVIR [Concomitant]
     Active Substance: ACYCLOVIR
  5. DARZALEX [Concomitant]
     Active Substance: DARATUMUMAB
  6. DEXAMETHASONE [Concomitant]
     Active Substance: DEXAMETHASONE
  7. ELIQUIS [Concomitant]
     Active Substance: APIXABAN
  8. FLUOROMETHOLONE [Concomitant]
     Active Substance: FLUOROMETHOLONE
  9. KYPROLIS [Concomitant]
     Active Substance: CARFILZOMIB
  10. METOPROLOL [Concomitant]
     Active Substance: METOPROLOL
  11. TORSEMIDE [Concomitant]
     Active Substance: TORSEMIDE
  12. LEVOTHYROXINE [Concomitant]
     Active Substance: LEVOTHYROXINE
  13. LOMOTIL [Concomitant]
     Active Substance: ATROPINE SULFATE\DIPHENOXYLATE HYDROCHLORIDE
  14. POTASSIUM CHLORIDE [Concomitant]
     Active Substance: POTASSIUM CHLORIDE
  15. ZOFRAN [Concomitant]
     Active Substance: ONDANSETRON HYDROCHLORIDE

REACTIONS (9)
  - Oedema [Unknown]
  - Cellulitis [Unknown]
  - Laboratory test abnormal [Unknown]
  - Diarrhoea [Not Recovered/Not Resolved]
  - Vomiting [Unknown]
  - Asthenia [Unknown]
  - Nausea [Not Recovered/Not Resolved]
  - Platelet count decreased [Unknown]
  - Fatigue [Unknown]

NARRATIVE: CASE EVENT DATE: 20230101
